FAERS Safety Report 8260980-3 (Version None)
Quarter: 2012Q2

REPORT INFORMATION
  Report Type: 
  Country: None (occurrence: None)
  Receive Date: 20120405
  Receipt Date: 20120330
  Transmission Date: 20120825
  Serious: No
  Sender: FDA-Public Use
  Company Number: US-PFIZER INC-2012081569

PATIENT
  Sex: Male

DRUGS (3)
  1. SUTENT [Suspect]
     Indication: METASTATIC RENAL CELL CARCINOMA
     Dosage: 25 MG DAILY
     Dates: start: 20111125
  2. SUTENT [Suspect]
     Dosage: 37.5 MG, UNK
     Dates: start: 20120101
  3. LISINOPRIL [Concomitant]
     Dosage: UNK

REACTIONS (1)
  - EPISTAXIS [None]
